FAERS Safety Report 13886116 (Version 1)
Quarter: 2017Q3

REPORT INFORMATION
  Report Type: Spontaneous
  Country: JP (occurrence: JP)
  Receive Date: 20170821
  Receipt Date: 20170821
  Transmission Date: 20171127
  Serious: Yes (Other)
  Sender: FDA-Public Use
  Company Number: JP-ALLERGAN-1735466US

PATIENT
  Age: 53 Year
  Sex: Male
  Weight: 57 kg

DRUGS (12)
  1. PROGRAF [Suspect]
     Active Substance: TACROLIMUS\TACROLIMUS ANHYDROUS
     Dosage: 0.5 MG, QD
     Route: 042
     Dates: start: 20161208, end: 20170320
  2. AMBISOME [Suspect]
     Active Substance: AMPHOTERICIN B
     Indication: PULMONARY MYCOSIS
     Dosage: 125 MG, QD
     Route: 042
     Dates: start: 20161210, end: 20170119
  3. FEBURIC [Concomitant]
     Active Substance: FEBUXOSTAT
     Indication: HYPERURICAEMIA
     Dosage: 20 MG, QD
     Route: 048
     Dates: start: 20170118
  4. URSODEOXYCHOLIC ACID - BP [Suspect]
     Active Substance: URSODIOL
     Indication: CHOLESTASIS
     Dosage: 200 MG, TID
     Route: 048
     Dates: start: 20161102
  5. DENOSINE [Suspect]
     Active Substance: GANCICLOVIR
     Indication: CYTOMEGALOVIRUS VIRAEMIA
     Dosage: UNK
     Route: 042
     Dates: start: 20170106, end: 20170130
  6. OMEPRAZOLE. [Concomitant]
     Active Substance: OMEPRAZOLE
     Indication: GASTRIC ULCER
     Dosage: 20 MG, BID
     Route: 042
     Dates: start: 20161207, end: 20170215
  7. PROGRAF [Suspect]
     Active Substance: TACROLIMUS\TACROLIMUS ANHYDROUS
     Indication: GRAFT VERSUS HOST DISEASE
     Dosage: 0.2 MG, QD
     Route: 042
     Dates: start: 20161208, end: 20170320
  8. CIPROFLOXACIN. [Suspect]
     Active Substance: CIPROFLOXACIN
     Indication: PNEUMONIA
     Dosage: 200 MG, QD
     Route: 042
     Dates: start: 20170102, end: 20170116
  9. TEICOPLANIN [Suspect]
     Active Substance: TEICOPLANIN
     Indication: PNEUMONIA
     Dosage: 400 UNK, UNK
     Route: 042
     Dates: start: 20170102, end: 20170116
  10. ELCITONIN [Concomitant]
     Active Substance: ELCATONIN
     Indication: HYPERCALCAEMIA
     Dosage: 40 UNITS, BID
     Route: 030
     Dates: start: 20170118, end: 20170121
  11. FUROSEMIDE. [Suspect]
     Active Substance: FUROSEMIDE
     Indication: CARDIAC FAILURE
     Dosage: UNK, QD
     Route: 042
     Dates: start: 20170105, end: 20170127
  12. EDIROL [Concomitant]
     Active Substance: ELDECALCITOL
     Indication: HYPOCALCAEMIA
     Dosage: 0.75 MG, QD
     Route: 048
     Dates: start: 20161228, end: 20170109

REACTIONS (2)
  - Off label use [Unknown]
  - Renal impairment [Recovered/Resolved]
